FAERS Safety Report 4554018-9 (Version None)
Quarter: 2005Q1

REPORT INFORMATION
  Report Type: 
  Country: None (occurrence: None)
  Receive Date: 20050113
  Receipt Date: 20050113
  Transmission Date: 20050727
  Serious: Yes (Other)
  Sender: FDA-Public Use
  Company Number: None

PATIENT
  Age: 63 Year
  Sex: Female
  Weight: 80.7403 kg

DRUGS (6)
  1. CORICIDIN D TABLETS [Suspect]
     Indication: NASOPHARYNGITIS
     Dosage: 2 TABS ORAL
     Route: 048
     Dates: start: 19620101, end: 20000101
  2. SPIRONOLACTONE [Concomitant]
  3. PRILOSEC [Concomitant]
  4. PREMARIN [Concomitant]
  5. QUININE [Concomitant]
  6. DEXATRIM TABLETS [Concomitant]

REACTIONS (8)
  - AMNESIA [None]
  - APHASIA [None]
  - BLOOD PRESSURE INCREASED [None]
  - DIZZINESS [None]
  - HAEMORRHAGIC STROKE [None]
  - HYPOAESTHESIA [None]
  - MEMORY IMPAIRMENT [None]
  - MENTAL IMPAIRMENT [None]
